FAERS Safety Report 6259013-X (Version None)
Quarter: 2009Q3

REPORT INFORMATION
  Report Type: 
  Country: None (occurrence: None)
  Receive Date: 20090707
  Receipt Date: 20090630
  Transmission Date: 20100115
  Serious: Yes (Other)
  Sender: FDA-Public Use
  Company Number: PHHY2009CA17400

PATIENT
  Age: 63 Year
  Sex: Female

DRUGS (10)
  1. ACLASTA [Suspect]
     Indication: OSTEITIS DEFORMANS
     Dosage: 5 MG
     Route: 042
     Dates: start: 20090224, end: 20090224
  2. DIOVAN [Concomitant]
     Dosage: 80 MG, UNK
  3. LIPITOR [Concomitant]
     Dosage: 10 MG, UNK
  4. DOMPERIDONE [Concomitant]
     Dosage: 10 MG, UNK
  5. SIALOR [Concomitant]
     Dosage: 25 MG, UNK
  6. OXAZEPAM [Concomitant]
     Dosage: 30 MG, UNK
  7. CELEBREX [Concomitant]
     Dosage: 200 MG, UNK
  8. PREMARIN [Concomitant]
     Dosage: 3 MG, UNK
  9. NOVO-TRIAMZIDE [Concomitant]
     Dosage: 50 MG, UNK
  10. PREVACID [Concomitant]
     Dosage: 30 MG, UNK

REACTIONS (2)
  - CONCOMITANT DISEASE AGGRAVATED [None]
  - GOITRE [None]
